FAERS Safety Report 25306080 (Version 1)
Quarter: 2025Q2

REPORT INFORMATION
  Report Type: Spontaneous
  Country: US (occurrence: None)
  Receive Date: 20250512
  Receipt Date: 20250512
  Transmission Date: 20250717
  Serious: Yes (Other)
  Sender: FDA-CTU
  Company Number: None

PATIENT
  Age: 68 Year
  Sex: Female
  Weight: 108.86 kg

DRUGS (30)
  1. RYCLORA [Suspect]
     Active Substance: DEXCHLORPHENIRAMINE MALEATE
     Indication: Antiallergic therapy
     Route: 048
     Dates: start: 20250201, end: 20250202
  2. TYLENOL EXTRA STRENGTH [Concomitant]
     Active Substance: ACETAMINOPHEN
  3. METAMUCIL [Concomitant]
     Active Substance: PLANTAGO SEED
  4. ESSIAC WORMWOOD COMBO [Concomitant]
  5. HERBALS\TURMERIC [Concomitant]
     Active Substance: HERBALS\TURMERIC
  6. GINGER [Concomitant]
     Active Substance: GINGER
  7. GLUCOSAMINE [Concomitant]
     Active Substance: GLUCOSAMINE
  8. DIMETHYL SULFONE [Concomitant]
     Active Substance: DIMETHYL SULFONE
  9. ANGELICA [Concomitant]
  10. BUTTERBUR [Concomitant]
  11. HORSE CHESTNUT [Concomitant]
     Active Substance: HORSE CHESTNUT
  12. GINKGO [Concomitant]
     Active Substance: GINKGO
  13. BURAGEON [Concomitant]
  14. QUININE IN TONIC WATER [Concomitant]
  15. COLLOIDAL SILVER [Concomitant]
     Active Substance: SILVER
  16. ZINC [Concomitant]
     Active Substance: ZINC
  17. HERBALS [Concomitant]
     Active Substance: HERBALS
  18. OREGANO [Concomitant]
     Active Substance: OREGANO
  19. LYSINE [Concomitant]
     Active Substance: LYSINE
  20. ASTRAGALUS [Concomitant]
  21. OLIVE LEAF [Concomitant]
  22. VITAMIN C [Concomitant]
     Active Substance: ASCORBIC ACID
  23. GARLIC [Concomitant]
     Active Substance: GARLIC
  24. PARSLEY [Concomitant]
     Active Substance: PARSLEY
  25. QUERCETIN [Concomitant]
     Active Substance: QUERCETIN
  26. BEET ROOT [Concomitant]
  27. BITTER MELON [Concomitant]
  28. CINNAMON [Concomitant]
     Active Substance: CINNAMON
  29. CHROMIUM [Concomitant]
     Active Substance: CHROMIC CHLORIDE\CHROMIUM
  30. BERBERINE [Concomitant]
     Active Substance: BERBERINE

REACTIONS (4)
  - Idiosyncratic drug reaction [None]
  - Rhinorrhoea [None]
  - Cough [None]
  - Secretion discharge [None]

NARRATIVE: CASE EVENT DATE: 20250202
